FAERS Safety Report 7434180-0 (Version None)
Quarter: 2011Q2

REPORT INFORMATION
  Report Type: 
  Country: None (occurrence: None)
  Receive Date: 20110425
  Receipt Date: 20110415
  Transmission Date: 20111010
  Serious: Yes (Death, Hospitalization, Other)
  Sender: FDA-Public Use
  Company Number: US-AMGEN-USASP2011020189

PATIENT
  Age: 62 Year
  Sex: Female

DRUGS (1)
  1. ENBREL [Suspect]
     Indication: RHEUMATOID ARTHRITIS
     Dosage: UNK, UNK
     Dates: start: 19970601, end: 20071001

REACTIONS (5)
  - INFECTION [None]
  - COMA [None]
  - CARDIAC ARREST [None]
  - RENAL FAILURE [None]
  - CARDIAC FAILURE CONGESTIVE [None]
